FAERS Safety Report 6418828-5 (Version None)
Quarter: 2009Q4

REPORT INFORMATION
  Report Type: 
  Country: None (occurrence: None)
  Receive Date: 20091029
  Receipt Date: 20091019
  Transmission Date: 20100525
  Serious: Yes (Hospitalization)
  Sender: FDA-Public Use
  Company Number: US-ASTRAZENECA-2009SE20907

PATIENT
  Age: 56 Year
  Sex: Male
  Weight: 74.8 kg

DRUGS (11)
  1. SYMBICORT [Suspect]
     Indication: CHRONIC OBSTRUCTIVE PULMONARY DISEASE
     Route: 055
     Dates: start: 20090404
  2. THEOPHYLLINE [Concomitant]
  3. O2 [Concomitant]
  4. PROVENTIL-HFA [Concomitant]
  5. FLONASE [Concomitant]
  6. NORVASC [Concomitant]
  7. LOPRESSOR [Concomitant]
  8. ENALAPRIL [Concomitant]
  9. ALEGRA [Concomitant]
  10. SPIRIVA [Concomitant]
  11. ADVAIR DISKUS 100/50 [Concomitant]

REACTIONS (1)
  - CHRONIC OBSTRUCTIVE PULMONARY DISEASE [None]
